FAERS Safety Report 23768164 (Version 1)
Quarter: 2024Q2

REPORT INFORMATION
  Report Type: Spontaneous
  Country: US (occurrence: None)
  Receive Date: 20240419
  Receipt Date: 20240419
  Transmission Date: 20240716
  Serious: No
  Sender: FDA-Public Use
  Company Number: None

PATIENT
  Age: 53 Year
  Sex: Female
  Weight: 109.8 kg

DRUGS (1)
  1. HIZENTRA [Suspect]
     Active Substance: HUMAN IMMUNOGLOBULIN G
     Indication: Immunodeficiency common variable
     Dosage: 14 G GRAMS WEEKLY SUBCUTANEOUS?
     Route: 058
     Dates: start: 20200324

REACTIONS (6)
  - Infusion related reaction [None]
  - Infusion site urticaria [None]
  - Infusion site erythema [None]
  - Infusion site pain [None]
  - Infusion site pruritus [None]
  - Product quality issue [None]

NARRATIVE: CASE EVENT DATE: 20240418
